FAERS Safety Report 7353789-6 (Version None)
Quarter: 2011Q1

REPORT INFORMATION
  Report Type: 
  Country: None (occurrence: None)
  Receive Date: 20110315
  Receipt Date: 20110311
  Transmission Date: 20110831
  Serious: Yes (Other)
  Sender: FDA-Public Use
  Company Number: DE-ABBOTT-11P-062-0696027-00

PATIENT
  Sex: Male
  Weight: 76 kg

DRUGS (10)
  1. PROTAPHANE [Concomitant]
     Indication: PRODUCT USED FOR UNKNOWN INDICATION
     Dosage: ONCE PER NIGHT ACCORDING TO BLOOD GLUCOS
  2. ACTRAPID [Concomitant]
     Indication: PRODUCT USED FOR UNKNOWN INDICATION
  3. BLOPRESS [Concomitant]
     Indication: PRODUCT USED FOR UNKNOWN INDICATION
     Dosage: 16MG ONCE PER MORNING
  4. AMLODIPINE [Concomitant]
     Dates: start: 20110310
  5. HUMIRA [Suspect]
     Indication: RHEUMATOID ARTHRITIS
     Route: 058
     Dates: start: 20101001, end: 20101221
  6. DEPOT INSULINE [Suspect]
     Indication: TYPE 2 DIABETES MELLITUS
  7. HUMALOG [Concomitant]
     Indication: PRODUCT USED FOR UNKNOWN INDICATION
     Dosage: ACCORDING TO BLOOD GLUCOSE
     Dates: start: 20100901
  8. ASPIRIN [Concomitant]
     Indication: PRODUCT USED FOR UNKNOWN INDICATION
     Dosage: 100 ONCE PER MORNING
  9. INEGY [Concomitant]
     Indication: PRODUCT USED FOR UNKNOWN INDICATION
     Dosage: ONCE PER EVENING
  10. AMLODIPINE [Concomitant]
     Indication: PRODUCT USED FOR UNKNOWN INDICATION
     Dosage: 5MG ONCE PER EVENING

REACTIONS (6)
  - DERMATITIS [None]
  - LICHENOID KERATOSIS [None]
  - LICHEN PLANUS [None]
  - SKIN PLAQUE [None]
  - RASH ERYTHEMATOUS [None]
  - PRURITUS [None]
